FAERS Safety Report 17334844 (Version 1)
Quarter: 2020Q1

REPORT INFORMATION
  Report Type: Spontaneous
  Country: US (occurrence: US)
  Receive Date: 20200128
  Receipt Date: 20200128
  Transmission Date: 20200409
  Serious: No
  Sender: FDA-Public Use
  Company Number: US-009507513-2001USA009871

PATIENT
  Sex: Male

DRUGS (2)
  1. TEMODAR [Suspect]
     Active Substance: TEMOZOLOMIDE
     Dosage: 2 CAPSULES, CYCLICAL, TAKE 2 CAPSULES (40 MILLIGRAM) BY MOUTH ON DAYS 1-5 OF A 28 DAY CYCLE WITH OR
     Route: 048
     Dates: start: 201907
  2. TEMODAR [Suspect]
     Active Substance: TEMOZOLOMIDE
     Dosage: 250 MILLIGRAM, CYCLICAL, TAKE 1 CAPSULE BY MOUTH ON DAYS 1-5 OF A 28 DAY CYCLE WITH OR WITHOUT FOOD
     Route: 048
     Dates: start: 201907

REACTIONS (2)
  - Vomiting [Not Recovered/Not Resolved]
  - Nausea [Not Recovered/Not Resolved]
